FAERS Safety Report 4972591-3 (Version None)
Quarter: 2006Q1

REPORT INFORMATION
  Report Type: 
  Country: None (occurrence: None)
  Receive Date: 20060216
  Receipt Date: 20051213
  Transmission Date: 20060701
  Serious: No
  Sender: FDA-Public Use
  Company Number: TPA2005A01649

PATIENT
  Age: 79 Year
  Sex: Male
  Weight: 90.7194 kg

DRUGS (3)
  1. ROZEREM [Suspect]
     Indication: INSOMNIA
     Dosage: 8 MG, HS, PER ORAL
     Route: 048
     Dates: start: 20051201, end: 20051211
  2. UNKNOWN THYROID MEDICATION (THYROID PREPARATIONS) [Concomitant]
  3. BACTRIM [Concomitant]

REACTIONS (1)
  - DRUG INEFFECTIVE [None]
